FAERS Safety Report 4913604-4 (Version None)
Quarter: 2006Q1

REPORT INFORMATION
  Report Type: 
  Country: None (occurrence: None)
  Receive Date: 20060214
  Receipt Date: 20060214
  Transmission Date: 20060701
  Serious: Yes (Other)
  Sender: FDA-Public Use
  Company Number: None

PATIENT
  Sex: Female

DRUGS (4)
  1. PERCOCET [Suspect]
     Indication: BACK PAIN
     Dosage: 10/325 MG 1-2 PO  PRN PAIN #180
     Route: 048
     Dates: start: 20050801
  2. PERCOCET [Suspect]
     Indication: RADICULOPATHY
     Dosage: 10/325 MG 1-2 PO  PRN PAIN #180
     Route: 048
     Dates: start: 20050801
  3. NORCO [Concomitant]
  4. TYL #3 [Concomitant]

REACTIONS (5)
  - DRUG INEFFECTIVE [None]
  - INADEQUATE ANALGESIA [None]
  - MIGRAINE [None]
  - NAUSEA [None]
  - PHARMACEUTICAL PRODUCT COMPLAINT [None]
